FAERS Safety Report 24802167 (Version 1)
Quarter: 2025Q1

REPORT INFORMATION
  Report Type: Spontaneous
  Country: US (occurrence: US)
  Receive Date: 20250103
  Receipt Date: 20250103
  Transmission Date: 20250409
  Serious: No
  Sender: APOTEX
  Company Number: US-APOTEX-2024AP019935

PATIENT
  Age: 38 Year
  Sex: Female

DRUGS (1)
  1. GLIPIZIDE [Suspect]
     Active Substance: GLIPIZIDE
     Indication: Monogenic diabetes
     Route: 065

REACTIONS (2)
  - Drug intolerance [Unknown]
  - Hypoglycaemia [Unknown]
